FAERS Safety Report 8473763-6 (Version None)
Quarter: 2012Q2

REPORT INFORMATION
  Report Type: 
  Country: None (occurrence: None)
  Receive Date: 20120621
  Receipt Date: 20120606
  Transmission Date: 20120825
  Serious: Yes (Death, Other)
  Sender: FDA-Public Use
  Company Number: US-2012-10687

PATIENT
  Age: 8 Year

DRUGS (11)
  1. LORAZEPAM [Concomitant]
  2. ACETYLCYSTEINE [Concomitant]
  3. ACYCLOVIR [Concomitant]
  4. FLUCONAZOLE [Concomitant]
  5. METHOTREXATE [Concomitant]
  6. ALEMTUZUMAB (ALEMTUZUMAB) [Suspect]
     Indication: BONE MARROW CONDITIONING REGIMEN
     Dosage: 0.5 MG/KG, DAILY DOSE, PARENTERAL
     Route: 051
  7. CYCLOSPORINE [Concomitant]
  8. IMMUNE GLOBULIN (HUMAN) [Concomitant]
  9. BUSULFAN [Suspect]
     Dosage: Q6HR, INTRAVENOUS
     Route: 042
  10. CLOTIMAZOLE [Concomitant]
  11. FLUDARABINE PHOSPHATE [Suspect]
     Indication: BONE MARROW CONDITIONING REGIMEN
     Dosage: SEE IMAGE
     Route: 051

REACTIONS (3)
  - GRAFT VERSUS HOST DISEASE IN LIVER [None]
  - NEOPLASM PROGRESSION [None]
  - GRAFT VERSUS HOST DISEASE IN SKIN [None]
